FAERS Safety Report 8354016-3 (Version None)
Quarter: 2012Q2

REPORT INFORMATION
  Report Type: 
  Country: None (occurrence: None)
  Receive Date: 20120511
  Receipt Date: 20120504
  Transmission Date: 20120825
  Serious: Yes (Other)
  Sender: FDA-Public Use
  Company Number: US-ASTRAZENECA-2012SE29226

PATIENT
  Age: 74 Year
  Sex: Female
  Weight: 65.8 kg

DRUGS (18)
  1. CALCIUM W/D AND K [Concomitant]
     Dosage: 600MG/400IU TWO DAILY
  2. AMBIEN [Concomitant]
  3. WOMENS 50  +VITAMIN [Concomitant]
  4. VITAMIN D3 SUPPLIMENT [Concomitant]
     Indication: VITAMIN D DEFICIENCY
  5. IBUPROFEN [Concomitant]
     Indication: PAIN
  6. METIMUSIL [Concomitant]
     Dosage: 1.5/2  TABLET BEDTIME
  7. OC GAS PILL [Concomitant]
  8. TOPROL-XL [Suspect]
     Indication: BLOOD PRESSURE ABNORMAL
     Route: 048
  9. HYDROCODONE BITARTRATE [Concomitant]
     Indication: PAIN
     Dosage: 10MG/325MG TWO AT 4 TO 6 HOURS
  10. BENICAR [Concomitant]
     Indication: BLOOD PRESSURE ABNORMAL
  11. FLAXSEED OIL [Concomitant]
  12. FLONASE [Concomitant]
     Indication: MULTIPLE ALLERGIES
     Dosage: TWO SPRAYS AM AND PM, AS NEEDED
  13. IBUPROFEN [Concomitant]
     Indication: INFLAMMATION
  14. B STRESS COMPLEX [Concomitant]
  15. SYNTHROID [Concomitant]
  16. NORVASC [Concomitant]
     Indication: BLOOD PRESSURE ABNORMAL
  17. ACIPHEX [Concomitant]
  18. SOMA [Concomitant]
     Indication: PAIN IN EXTREMITY
     Dosage: 325 MG HALF TO ONE AT BEDTIME

REACTIONS (7)
  - RECTOCELE [None]
  - TRIGGER FINGER [None]
  - CARPAL TUNNEL SYNDROME [None]
  - BENIGN BREAST NEOPLASM [None]
  - NASAL CAVITY CANCER [None]
  - JOINT INJURY [None]
  - NERVE COMPRESSION [None]
